FAERS Safety Report 10729815 (Version 1)
Quarter: 2015Q1

REPORT INFORMATION
  Report Type: Spontaneous
  Country: US (occurrence: US)
  Receive Date: 20150122
  Receipt Date: 20150122
  Transmission Date: 20150721
  Serious: No
  Sender: FDA-Public Use
  Company Number: US-ELI_LILLY_AND_COMPANY-US201412009996

PATIENT
  Sex: Male

DRUGS (3)
  1. AXIRON [Suspect]
     Active Substance: TESTOSTERONE
     Dosage: ONE PUMP UNDER EACH ARM DAILY
     Route: 065
     Dates: start: 20141226
  2. XANAX [Concomitant]
     Active Substance: ALPRAZOLAM
  3. AXIRON [Suspect]
     Active Substance: TESTOSTERONE
     Indication: BLOOD TESTOSTERONE DECREASED
     Dosage: ONE PUMP UNDER EACH ARM DAILY
     Route: 065
     Dates: start: 20131120

REACTIONS (1)
  - Blood testosterone decreased [Unknown]
